FAERS Safety Report 18841142 (Version 1)
Quarter: 2021Q1

REPORT INFORMATION
  Report Type: Spontaneous
  Country: JP (occurrence: JP)
  Receive Date: 20210203
  Receipt Date: 20210203
  Transmission Date: 20210419
  Serious: Yes (Hospitalization, Other)
  Sender: FDA-Public Use
  Company Number: JP-ANIPHARMA-2021-JP-000034

PATIENT
  Sex: Female

DRUGS (5)
  1. FASLODEX [Suspect]
     Active Substance: FULVESTRANT
     Dosage: UNKNOWN DOSE AND FREQUENCY
     Route: 030
  2. ARIMIDEX [Suspect]
     Active Substance: ANASTROZOLE
     Indication: BREAST CANCER FEMALE
     Dosage: 1 MG DAILY
     Route: 048
  3. NOLVADEX [Suspect]
     Active Substance: TAMOXIFEN CITRATE
     Dosage: UNKNOWN DOSE AND FREQUENCY
     Route: 048
  4. EXEMESTANE. [Suspect]
     Active Substance: EXEMESTANE
     Dosage: UNKNOWN DOSE AND FREQUENCY
     Route: 065
  5. LETROZOLE. [Concomitant]
     Active Substance: LETROZOLE
     Dosage: UNKNOWN DOSE AND FREQUENCY
     Route: 065

REACTIONS (4)
  - Retinal detachment [Unknown]
  - Malignant neoplasm of choroid [Unknown]
  - Rash [Unknown]
  - Pulmonary hypertension [Unknown]
